FAERS Safety Report 5360754-7 (Version None)
Quarter: 2007Q2

REPORT INFORMATION
  Report Type: 
  Country: None (occurrence: None)
  Receive Date: 20070618
  Receipt Date: 20070611
  Transmission Date: 20071010
  Serious: Yes (Death)
  Sender: FDA-Public Use
  Company Number: CA-JNJFOC-20070203161

PATIENT
  Age: 17 Month
  Sex: Male
  Weight: 9 kg

DRUGS (1)
  1. TYLENOL (CAPLET) [Suspect]
     Indication: PYREXIA

REACTIONS (1)
  - DEATH [None]
